FAERS Safety Report 15235849 (Version 2)
Quarter: 2018Q3

REPORT INFORMATION
  Report Type: Spontaneous
  Country: US (occurrence: US)
  Receive Date: 20180803
  Receipt Date: 20180901
  Transmission Date: 20181010
  Serious: No
  Sender: FDA-Public Use
  Company Number: US-JNJFOC-20180703865

PATIENT
  Age: 80 Year
  Sex: Female
  Weight: 62.14 kg

DRUGS (7)
  1. IMODIUM MULTI?SYMPTOM RELIEF [Suspect]
     Active Substance: DIMETHICONE\LOPERAMIDE HYDROCHLORIDE
     Indication: MUSCLE SPASMS
     Dosage: 2 CAPLETS? 1 AFTER EACH SUBSEQUENT LOOSE STOOL
     Route: 048
     Dates: start: 2018
  2. CHLORPHENIRAMINE MALEATE. [Concomitant]
     Active Substance: CHLORPHENIRAMINE MALEATE
     Indication: HYPERSENSITIVITY
     Dosage: HALF OF 5 MG
     Route: 065
     Dates: start: 1976
  3. IMODIUM MULTI?SYMPTOM RELIEF [Suspect]
     Active Substance: DIMETHICONE\LOPERAMIDE HYDROCHLORIDE
     Indication: DIARRHOEA
     Route: 048
     Dates: start: 20180701
  4. SYNTHROID [Concomitant]
     Active Substance: LEVOTHYROXINE SODIUM
     Indication: HYPOTHYROIDISM
     Route: 065
     Dates: start: 1998
  5. IMODIUM MULTI?SYMPTOM RELIEF [Suspect]
     Active Substance: DIMETHICONE\LOPERAMIDE HYDROCHLORIDE
     Indication: MUSCLE SPASMS
     Route: 048
     Dates: start: 20180701
  6. IMODIUM MULTI?SYMPTOM RELIEF [Suspect]
     Active Substance: DIMETHICONE\LOPERAMIDE HYDROCHLORIDE
     Indication: DIARRHOEA
     Dosage: 2 CAPLETS? 1 AFTER EACH SUBSEQUENT LOOSE STOOL
     Route: 048
     Dates: start: 2018
  7. CLONIDINE. [Concomitant]
     Active Substance: CLONIDINE
     Indication: HYPERTENSION
     Route: 065
     Dates: start: 2017

REACTIONS (5)
  - Dysphagia [Recovered/Resolved]
  - Product size issue [Unknown]
  - Wrong technique in product usage process [Unknown]
  - Product use complaint [Unknown]
  - Foreign body in respiratory tract [Recovered/Resolved]

NARRATIVE: CASE EVENT DATE: 20180701
